FAERS Safety Report 15990253 (Version 1)
Quarter: 2019Q1

REPORT INFORMATION
  Report Type: Spontaneous
  Country: US (occurrence: US)
  Receive Date: 20190221
  Receipt Date: 20190221
  Transmission Date: 20190418
  Serious: Yes (Disabling)
  Sender: FDA-Public Use
  Company Number: None

PATIENT
  Age: 67 Year
  Sex: Female
  Weight: 51.75 kg

DRUGS (12)
  1. SYNTHROID [Concomitant]
     Active Substance: LEVOTHYROXINE SODIUM
  2. METOPROLOL ER [Concomitant]
     Active Substance: METOPROLOL SUCCINATE
  3. AMLODIPINE [Concomitant]
     Active Substance: AMLODIPINE BESYLATE
  4. LIPOFLAVONOID [Concomitant]
     Active Substance: UNSPECIFIED INGREDIENT
  5. REPATHA [Suspect]
     Active Substance: EVOLOCUMAB
     Indication: BLOOD CHOLESTEROL INCREASED
     Dosage: ?          QUANTITY:1 INJECTION(S);OTHER FREQUENCY:02/04/2019;?
     Route: 030
     Dates: start: 20190204, end: 20190204
  6. ZETIA [Concomitant]
     Active Substance: EZETIMIBE
  7. ASPIRIN. [Concomitant]
     Active Substance: ASPIRIN
  8. ZINC. [Concomitant]
     Active Substance: ZINC
  9. VITAMIN D3 [Concomitant]
     Active Substance: CHOLECALCIFEROL
  10. REPATHA [Suspect]
     Active Substance: EVOLOCUMAB
     Indication: BLOOD CHOLESTEROL INCREASED
     Dosage: ?          QUANTITY:1 INJECTION(S);OTHER FREQUENCY:01/07/2019;?
     Route: 030
     Dates: start: 20190107, end: 20190107
  11. FOLIC ACID. [Concomitant]
     Active Substance: FOLIC ACID
  12. FERROUS SULFATE. [Concomitant]
     Active Substance: FERROUS SULFATE

REACTIONS (5)
  - Pain in extremity [None]
  - Ear congestion [None]
  - Angioedema [None]
  - Musculoskeletal pain [None]
  - Musculoskeletal stiffness [None]

NARRATIVE: CASE EVENT DATE: 20190107
